FAERS Safety Report 20454214 (Version 1)
Quarter: 2022Q1

REPORT INFORMATION
  Report Type: Spontaneous
  Country: US (occurrence: None)
  Receive Date: 20220209
  Receipt Date: 20220209
  Transmission Date: 20220423
  Serious: Yes (Other)
  Sender: FDA-Public Use
  Company Number: None

PATIENT
  Age: 56 Year
  Sex: Female
  Weight: 60.75 kg

DRUGS (1)
  1. METHYLPHENIDATE [Suspect]
     Active Substance: METHYLPHENIDATE
     Indication: Attention deficit hyperactivity disorder
     Dosage: OTHER QUANTITY : 1 TABLET(S);?FREQUENCY : DAILY;?
     Dates: start: 20211001, end: 20220115

REACTIONS (9)
  - Product substitution issue [None]
  - Somnolence [None]
  - Oropharyngeal pain [None]
  - Dysphagia [None]
  - Tonsillolith [None]
  - Loss of personal independence in daily activities [None]
  - Impaired work ability [None]
  - Speech disorder [None]
  - Weight increased [None]
